FAERS Safety Report 6240351-1 (Version None)
Quarter: 2009Q2

REPORT INFORMATION
  Report Type: 
  Country: None (occurrence: None)
  Receive Date: 20090623
  Receipt Date: 20080818
  Transmission Date: 20091009
  Serious: No
  Sender: FDA-Public Use
  Company Number: US-ASTRAZENECA-2008UW16783

PATIENT
  Age: 63 Year
  Sex: Female
  Weight: 59.9 kg

DRUGS (7)
  1. PULMICORT RESPULES [Suspect]
     Indication: EMPHYSEMA
     Route: 055
  2. PULMICORT RESPULES [Suspect]
     Indication: CHRONIC OBSTRUCTIVE PULMONARY DISEASE
     Route: 055
  3. PERFOROMIST [Suspect]
     Dosage: 20UG/2ML
  4. EVISTA [Concomitant]
  5. ZOLOFT [Concomitant]
  6. KLONOPIN [Concomitant]
     Dosage: 0.5 THREE TIMES A DAY
  7. SPIRIVA [Concomitant]

REACTIONS (6)
  - COUGH [None]
  - EYE PRURITUS [None]
  - MEDICATION ERROR [None]
  - THROAT IRRITATION [None]
  - THROAT TIGHTNESS [None]
  - TONGUE DISCOLOURATION [None]
